FAERS Safety Report 13053595 (Version 1)
Quarter: 2016Q4

REPORT INFORMATION
  Report Type: Spontaneous
  Country: JP (occurrence: JP)
  Receive Date: 20161222
  Receipt Date: 20161222
  Transmission Date: 20170207
  Serious: Yes (Death, Life-Threatening)
  Sender: FDA-Public Use
  Company Number: JP-CLINIGEN GROUP PLC/ CLINIGEN HEALTHCARE LTD-E2B_00005430

PATIENT
  Age: 58 Year
  Sex: Female
  Weight: 53 kg

DRUGS (7)
  1. REMINARON [Concomitant]
     Active Substance: GABEXATE MESYLATE
     Route: 042
     Dates: start: 20110802, end: 20110812
  2. FINIBAX [Concomitant]
     Active Substance: DORIPENEM MONOHYDRATE
     Route: 042
     Dates: start: 20110802, end: 20110814
  3. FOSCAVIR [Suspect]
     Active Substance: FOSCARNET SODIUM
     Indication: CYTOMEGALOVIRUS INFECTION
     Route: 041
     Dates: start: 20110809, end: 20110814
  4. PREDONINE [Concomitant]
     Active Substance: PREDNISOLONE\PREDNISOLONE ACETATE\PREDNISOLONE SODIUM SUCCINATE
     Route: 042
     Dates: start: 20110802, end: 20110811
  5. OMEPRAL INJECTION 20 [Concomitant]
     Route: 042
     Dates: start: 20110801, end: 20110814
  6. BENAMBAX [Concomitant]
     Active Substance: PENTAMIDINE
     Route: 042
     Dates: start: 20110810, end: 20110814
  7. PRODIF [Concomitant]
     Active Substance: FOSFLUCONAZOLE
     Route: 042
     Dates: start: 20110801, end: 20110814

REACTIONS (3)
  - Hypocalcaemia [Recovering/Resolving]
  - Renal impairment [Not Recovered/Not Resolved]
  - Pulmonary oedema [Fatal]

NARRATIVE: CASE EVENT DATE: 20110810
